FAERS Safety Report 9105910 (Version 3)
Quarter: 2013Q2

REPORT INFORMATION
  Report Type: Report from Study
  Country: US (occurrence: US)
  Receive Date: 20130220
  Receipt Date: 20130424
  Transmission Date: 20140414
  Serious: Yes (Hospitalization)
  Sender: FDA-Public Use
  Company Number: US-BRISTOL-MYERS SQUIBB COMPANY-17387911

PATIENT
  Age: 54 Year
  Sex: Male
  Weight: 70 kg

DRUGS (17)
  1. CETUXIMAB [Suspect]
     Indication: METASTATIC SQUAMOUS CELL CARCINOMA
     Dosage: DAY 1 OF CYCLE 1,250MG/M2 WKLY,IV:01OCT2012?23SEP2012-ONG?LAST DOSE ON 24JAN2013
     Route: 042
     Dates: start: 20120924
  2. CISPLATIN [Suspect]
     Indication: METASTATIC SQUAMOUS CELL CARCINOMA
     Dosage: LAST DOSE ON 24JAN2013
     Route: 042
     Dates: start: 20120924
  3. 5-FLUOROURACIL [Suspect]
     Indication: METASTATIC SQUAMOUS CELL CARCINOMA
     Dosage: LAST DOSE ON 24JAN2013
     Route: 042
     Dates: start: 20120924
  4. ALBUTEROL [Concomitant]
     Indication: DYSPNOEA
     Dates: start: 20100215
  5. ACETYLSALICYLIC ACID [Concomitant]
     Indication: PROPHYLAXIS
     Dates: start: 20120501
  6. CLINDAMYCIN [Concomitant]
     Indication: DERMATITIS ACNEIFORM
     Dates: start: 20121008
  7. DENOSUMAB [Concomitant]
     Indication: METASTASES TO BONE
     Dates: start: 20121130
  8. DOXYCYCLINE [Concomitant]
     Indication: HYPOMAGNESAEMIA
     Dates: start: 20110818
  9. HYDROXYZINE [Concomitant]
     Indication: PRURITUS
     Dates: start: 20121008
  10. LEVETIRACETAM [Concomitant]
     Indication: CONVULSION
     Dates: start: 1974
  11. LIDOCAINE [Concomitant]
     Indication: ORAL PAIN
     Dates: start: 201103
  12. MAGNESIUM OXIDE [Concomitant]
     Indication: HYPOMAGNESAEMIA
     Dates: start: 20121204
  13. METRONIDAZOLE [Concomitant]
     Indication: ROSACEA
     Dates: start: 20090723
  14. PHENOBARBITAL [Concomitant]
     Indication: CONVULSION
     Dates: start: 1974
  15. RANITIDINE [Concomitant]
     Indication: GASTROOESOPHAGEAL REFLUX DISEASE
     Dates: start: 20090205
  16. ROSUVASTATIN [Concomitant]
     Indication: TRANSIENT ISCHAEMIC ATTACK
     Dates: start: 20090522
  17. MULTIVITAMIN [Concomitant]
     Indication: VITAMIN SUPPLEMENTATION

REACTIONS (1)
  - Hypophosphataemia [Recovered/Resolved]
